FAERS Safety Report 11867821 (Version 3)
Quarter: 2017Q3

REPORT INFORMATION
  Report Type: Spontaneous
  Country: US (occurrence: US)
  Receive Date: 20151224
  Receipt Date: 20170824
  Transmission Date: 20171127
  Serious: Yes (Death, Hospitalization)
  Sender: FDA-Public Use
  Company Number: US-JNJFOC-20151221307

PATIENT
  Age: 40 Year
  Sex: Male
  Weight: 75 kg

DRUGS (11)
  1. OXYCODONE [Concomitant]
     Active Substance: OXYCODONE
     Indication: PAIN
     Dosage: 10 TO 30 MG
     Route: 048
     Dates: start: 20151112, end: 20151203
  2. DEXAMETHASONE. [Concomitant]
     Active Substance: DEXAMETHASONE
     Indication: PAIN
     Route: 048
     Dates: start: 20151127, end: 20151203
  3. FENTANYL. [Concomitant]
     Active Substance: FENTANYL
     Indication: PAIN
     Route: 065
     Dates: start: 20151112, end: 20151203
  4. OXYCONTIN [Concomitant]
     Active Substance: OXYCODONE HYDROCHLORIDE
     Indication: PAIN
     Route: 048
     Dates: start: 20151109, end: 20151203
  5. ENOXAPARIN [Concomitant]
     Active Substance: ENOXAPARIN
     Indication: DEEP VEIN THROMBOSIS
     Route: 058
     Dates: start: 20151113, end: 20151203
  6. LORAZEPAM. [Concomitant]
     Active Substance: LORAZEPAM
     Indication: ANXIETY
     Dosage: 0.5 TO 1MG
     Route: 048
     Dates: start: 20150116, end: 20151203
  7. YONDELIS [Suspect]
     Active Substance: TRABECTEDIN
     Route: 042
  8. YONDELIS [Suspect]
     Active Substance: TRABECTEDIN
     Indication: LIPOSARCOMA
     Route: 042
     Dates: start: 20151127, end: 20151128
  9. COMPAZINE [Concomitant]
     Active Substance: PROCHLORPERAZINE MALEATE
     Indication: NAUSEA
     Route: 048
     Dates: start: 20151021, end: 20151203
  10. APAP [Concomitant]
     Active Substance: ACETAMINOPHEN
     Indication: PAIN
     Route: 048
     Dates: start: 20150116, end: 20151203
  11. KCL [Concomitant]
     Active Substance: POTASSIUM CHLORIDE
     Indication: HYPOKALAEMIA
     Route: 048
     Dates: start: 20151127, end: 20151203

REACTIONS (2)
  - Death [Fatal]
  - Hospitalisation [Fatal]

NARRATIVE: CASE EVENT DATE: 20151202
